FAERS Safety Report 5999626-3 (Version None)
Quarter: 2008Q4

REPORT INFORMATION
  Report Type: 
  Country: None (occurrence: None)
  Receive Date: 20081211
  Receipt Date: 20081211
  Transmission Date: 20090506
  Serious: Yes (Other)
  Sender: FDA-Public Use
  Company Number: None

PATIENT
  Sex: Female
  Weight: 77.1115 kg

DRUGS (2)
  1. DIGETEK [Suspect]
     Dosage: 250 MG DAILY ORAL
     Route: 048
     Dates: start: 20080319, end: 20080701
  2. LANOXIN [Suspect]
     Dosage: 250 ML DAILY ORAL
     Route: 048
     Dates: start: 20080319, end: 20080701

REACTIONS (3)
  - BREAST PAIN [None]
  - BREAST SWELLING [None]
  - DIZZINESS [None]
